FAERS Safety Report 16091174 (Version 1)
Quarter: 2019Q1

REPORT INFORMATION
  Report Type: Spontaneous
  Country: US (occurrence: US)
  Receive Date: 20190319
  Receipt Date: 20190319
  Transmission Date: 20190418
  Serious: Yes (Other)
  Sender: FDA-Public Use
  Company Number: US-ARBOR PHARMACEUTICALS, LLC-US-2019ARB000539

PATIENT
  Sex: Female

DRUGS (1)
  1. NYMALIZE [Suspect]
     Active Substance: NIMODIPINE
     Indication: ANEURYSM
     Dosage: UNK, EVERY 8 HOURS
     Route: 048

REACTIONS (2)
  - Hemiplegia [Unknown]
  - Product dose omission [Unknown]
